FAERS Safety Report 6662503-9 (Version None)
Quarter: 2010Q1

REPORT INFORMATION
  Report Type: 
  Country: None (occurrence: None)
  Receive Date: 20100331
  Receipt Date: 20100317
  Transmission Date: 20100710
  Serious: Yes (Hospitalization)
  Sender: FDA-Public Use
  Company Number: SE-MERCK-0201SWE00022

PATIENT
  Age: 49 Year
  Sex: Male

DRUGS (3)
  1. ZOCOR [Suspect]
     Indication: HYPERLIPIDAEMIA
     Route: 048
     Dates: start: 19860101, end: 20010810
  2. CHOLESTYRAMINE RESIN [Suspect]
     Indication: HYPERLIPIDAEMIA
     Route: 048
     Dates: start: 19940101, end: 20010810
  3. COSOPT [Concomitant]
     Route: 065

REACTIONS (3)
  - LIVER DISORDER [None]
  - MUSCLE DISORDER [None]
  - POLYNEUROPATHY [None]
